FAERS Safety Report 12226994 (Version 1)
Quarter: 2016Q1

REPORT INFORMATION
  Report Type: Spontaneous
  Country: US (occurrence: US)
  Receive Date: 20160331
  Receipt Date: 20160331
  Transmission Date: 20160526
  Serious: Yes (Death, Life-Threatening)
  Sender: FDA-Public Use
  Company Number: US-ROXANE LABORATORIES, INC.-2016-RO-00557RO

PATIENT
  Age: 41 Year
  Sex: Female

DRUGS (1)
  1. CYCLOPHOSPHAMIDE. [Suspect]
     Active Substance: CYCLOPHOSPHAMIDE
     Indication: DEMYELINATING POLYNEUROPATHY
     Route: 065

REACTIONS (4)
  - Cardiotoxicity [Unknown]
  - Myocarditis [Fatal]
  - Myocardial haemorrhage [Fatal]
  - Multiple organ dysfunction syndrome [Unknown]
